FAERS Safety Report 5332808-2 (Version None)
Quarter: 2007Q2

REPORT INFORMATION
  Report Type: 
  Country: None (occurrence: None)
  Receive Date: 20070523
  Receipt Date: 20070511
  Transmission Date: 20071010
  Serious: Yes (Other)
  Sender: FDA-Public Use
  Company Number: US-PFIZER INC-2007040143

PATIENT
  Sex: Female
  Weight: 82.7 kg

DRUGS (27)
  1. CHANTIX [Suspect]
     Indication: SMOKING CESSATION THERAPY
  2. GLUCOPHAGE [Concomitant]
  3. ACIPHEX [Concomitant]
  4. LANTUS [Concomitant]
  5. HUMALOG [Concomitant]
  6. PRAVACHOL [Concomitant]
  7. UNITHROID [Concomitant]
  8. METOCLOPRAMIDE [Concomitant]
  9. ZETIA [Concomitant]
  10. VALTREX [Concomitant]
  11. SUCRALFATE [Concomitant]
  12. GLYCOPYRROLATE [Concomitant]
  13. NIZATIDINE [Concomitant]
  14. ACTOS [Concomitant]
  15. BUSPAR [Concomitant]
  16. TOPAMAX [Concomitant]
  17. CYMBALTA [Concomitant]
  18. SEROQUEL [Concomitant]
  19. ALL OTHER THERAPEUTIC PRODUCTS [Concomitant]
  20. CLARINEX [Concomitant]
  21. ABILIFY [Concomitant]
  22. CYCLOSPORINE [Concomitant]
  23. PREPARATIONS FOR TREATMENT OF WOUNDS + ULCERS [Concomitant]
  24. CHLORPROMAZINE [Concomitant]
  25. FIORICET [Concomitant]
  26. LORTAB [Concomitant]
  27. ALBUTEROL [Concomitant]

REACTIONS (2)
  - BLOOD MAGNESIUM DECREASED [None]
  - WEIGHT DECREASED [None]
